FAERS Safety Report 9838178 (Version 2)
Quarter: 2014Q1

REPORT INFORMATION
  Report Type: Report from Study
  Country: CO (occurrence: CO)
  Receive Date: 20140123
  Receipt Date: 20140131
  Transmission Date: 20141002
  Serious: Yes (Hospitalization)
  Sender: FDA-Public Use
  Company Number: CO-ASTRAZENECA-2014SE03619

PATIENT
  Age: 29983 Day
  Sex: Female

DRUGS (7)
  1. BRILINTA [Suspect]
     Indication: INFARCTION
     Route: 048
     Dates: start: 20130801
  2. ESOMEPRAZOL [Concomitant]
     Route: 048
  3. IPRATROPIUM BROMIDE [Concomitant]
     Route: 055
  4. AEROVIAL [Concomitant]
     Route: 055
  5. VERAPAMILE [Concomitant]
     Route: 048
  6. FUROSEMIDE [Concomitant]
     Route: 048
  7. CONCOR [Concomitant]
     Route: 048

REACTIONS (1)
  - Acute myocardial infarction [Recovered/Resolved]
